FAERS Safety Report 5757910-2 (Version None)
Quarter: 2008Q2

REPORT INFORMATION
  Report Type: 
  Country: None (occurrence: None)
  Receive Date: 20080602
  Receipt Date: 20080602
  Transmission Date: 20081010
  Serious: Yes (Other)
  Sender: FDA-Public Use
  Company Number: None

PATIENT
  Age: 5 Year
  Sex: Male
  Weight: 25.855 kg

DRUGS (1)
  1. SINGULAIR [Suspect]
     Indication: HYPERSENSITIVITY
     Dates: start: 20070915, end: 20080520

REACTIONS (9)
  - AGGRESSION [None]
  - CRYING [None]
  - DEPRESSED MOOD [None]
  - EDUCATIONAL PROBLEM [None]
  - FATIGUE [None]
  - MOOD SWINGS [None]
  - NIGHTMARE [None]
  - SCREAMING [None]
  - STOMACH DISCOMFORT [None]
